FAERS Safety Report 8950967 (Version 2)
Quarter: 2012Q4

REPORT INFORMATION
  Report Type: Report from Study
  Country: CA (occurrence: CA)
  Receive Date: 20121207
  Receipt Date: 20121217
  Transmission Date: 20130627
  Serious: Yes (Hospitalization)
  Sender: FDA-Public Use
  Company Number: CA-ABBOTT-12P-028-1015245-00

PATIENT
  Age: 35 Year
  Sex: Male
  Weight: 90.2 kg

DRUGS (3)
  1. HUMIRA [Suspect]
     Indication: CROHN^S DISEASE
     Route: 058
     Dates: start: 20110923, end: 20120913
  2. HUMIRA [Suspect]
     Route: 058
     Dates: start: 20121203
  3. SEROQUEL [Concomitant]
     Indication: SCHIZOPHRENIA

REACTIONS (1)
  - Prostatitis [Not Recovered/Not Resolved]
